FAERS Safety Report 14699039 (Version 1)
Quarter: 2018Q1

REPORT INFORMATION
  Report Type: Spontaneous
  Country: IN (occurrence: IN)
  Receive Date: 20180330
  Receipt Date: 20180330
  Transmission Date: 20180509
  Serious: Yes (Other)
  Sender: FDA-Public Use
  Company Number: IN-CIPLA LTD.-2018IN13907

PATIENT

DRUGS (5)
  1. ESCITALOPRAM [Suspect]
     Active Substance: ESCITALOPRAM OXALATE
     Indication: SUICIDAL IDEATION
     Dosage: 5 TO 10 MG PER DAY
     Route: 065
  2. CABERGOLINE. [Suspect]
     Active Substance: CABERGOLINE
     Indication: HYPERPROLACTINAEMIA
     Dosage: 0.5 MG, ONCE A WEEK
     Route: 065
  3. ARIPIPRAZOLE. [Suspect]
     Active Substance: ARIPIPRAZOLE
     Indication: DELUSION
     Dosage: UNK
     Route: 065
  4. LORAZEPAM. [Concomitant]
     Active Substance: LORAZEPAM
     Indication: SELF-INJURIOUS IDEATION
     Dosage: UNK
     Route: 065
  5. OLANZAPINE. [Suspect]
     Active Substance: OLANZAPINE
     Indication: DELUSION
     Dosage: 10 G, PER DAY
     Route: 065

REACTIONS (6)
  - Hypomania [Recovered/Resolved]
  - Headache [Unknown]
  - Delusion [Recovered/Resolved]
  - Drug ineffective [Unknown]
  - Akathisia [Unknown]
  - Weight increased [Unknown]
